FAERS Safety Report 13224716 (Version 1)
Quarter: 2017Q1

REPORT INFORMATION
  Report Type: Spontaneous
  Country: US (occurrence: US)
  Receive Date: 20170213
  Receipt Date: 20170213
  Transmission Date: 20170428
  Serious: No
  Sender: FDA-Public Use
  Company Number: US-ASTRAZENECA-2017SE12764

PATIENT
  Sex: Female

DRUGS (1)
  1. SYMBICORT [Suspect]
     Active Substance: BUDESONIDE\FORMOTEROL FUMARATE DIHYDRATE
     Dosage: 80/4.5 UG UNKNOWN
     Route: 055

REACTIONS (11)
  - Product use issue [Unknown]
  - Asthma [Unknown]
  - Insomnia [Unknown]
  - Hypoacusis [Unknown]
  - Drug dose omission [Unknown]
  - Intentional product misuse [Unknown]
  - Medication error [Unknown]
  - Device malfunction [Unknown]
  - Off label use [Unknown]
  - Dysphonia [Unknown]
  - Circumstance or information capable of leading to medication error [Unknown]
